FAERS Safety Report 11568481 (Version 3)
Quarter: 2015Q4

REPORT INFORMATION
  Report Type: Report from Study
  Country: JP (occurrence: JP)
  Receive Date: 20150929
  Receipt Date: 20151109
  Transmission Date: 20160304
  Serious: No
  Sender: FDA-Public Use
  Company Number: JP-TAKEDA-2015TEU008053

PATIENT
  Age: 78 Year
  Sex: Female

DRUGS (2)
  1. LANSOPRAZOLE. [Suspect]
     Active Substance: LANSOPRAZOLE
     Indication: PRODUCT USED FOR UNKNOWN INDICATION
     Dosage: 15 MG, QD
     Route: 048
  2. WARFARIN [Interacting]
     Active Substance: WARFARIN
     Indication: CARDIAC OPERATION
     Dosage: 3 MG, UNK
     Route: 065

REACTIONS (3)
  - Conjunctival haemorrhage [Recovered/Resolved]
  - International normalised ratio increased [Not Recovered/Not Resolved]
  - Drug interaction [Unknown]
